FAERS Safety Report 17547857 (Version 1)
Quarter: 2020Q1

REPORT INFORMATION
  Report Type: Spontaneous
  Country: GB (occurrence: GB)
  Receive Date: 20200316
  Receipt Date: 20200316
  Transmission Date: 20200409
  Serious: Yes (Hospitalization, Other)
  Sender: FDA-Public Use
  Company Number: GB-BAXTER-2020BAX005309

PATIENT
  Age: 63 Year

DRUGS (2)
  1. PHYSIONEAL 40 GLUCOSE 1.36% W/V / 13.6 MG/ML CLEAR-FLEX, SOLUTION FOR [Suspect]
     Active Substance: CALCIUM CL\DEXTROSE\MAGNESIUM CL\SODIUM BICAR\SODIUM CL\SODIUM LACT
     Indication: PERITONEAL DIALYSIS
     Route: 033
     Dates: start: 20190405
  2. EXTRANEAL [Suspect]
     Active Substance: CALCIUM CHLORIDE\ICODEXTRIN\MAGNESIUM CHLORIDE\SODIUM CHLORIDE\SODIUM LACTATE
     Indication: PERITONEAL DIALYSIS
     Dosage: FROM A 2 LITER BAG
     Route: 033
     Dates: start: 20190405

REACTIONS (2)
  - Peritonitis bacterial [Unknown]
  - Pseudomonas peritonitis [Unknown]

NARRATIVE: CASE EVENT DATE: 20190818
